FAERS Safety Report 10222413 (Version 1)
Quarter: 2014Q2

REPORT INFORMATION
  Report Type: Spontaneous
  Country: CH (occurrence: CH)
  Receive Date: 20140606
  Receipt Date: 20140606
  Transmission Date: 20141212
  Serious: Yes (Other)
  Sender: FDA-Public Use
  Company Number: CH-ACTAVIS-2013-25058

PATIENT
  Age: 30 Year
  Sex: Female

DRUGS (4)
  1. VENLAFAXINE HYDROCHLORIDE (UNKNOWN) [Suspect]
     Indication: PERSONALITY DISORDER
     Dosage: 150 MG, DAILY
     Route: 048
     Dates: start: 20130416
  2. MIRTAZAPINE [Suspect]
     Indication: PERSONALITY DISORDER
     Dosage: 45 MG, DAILY
     Route: 048
     Dates: start: 20130614
  3. BECOZYME                           /00003501/ [Concomitant]
     Indication: PRODUCT USED FOR UNKNOWN INDICATION
     Dosage: UNK, UNKNOWN
     Route: 048
  4. CALPEROS D3 [Concomitant]
     Indication: PRODUCT USED FOR UNKNOWN INDICATION
     Dosage: UNK

REACTIONS (1)
  - Galactorrhoea [Not Recovered/Not Resolved]
